FAERS Safety Report 22077853 (Version 1)
Quarter: 2023Q1

REPORT INFORMATION
  Report Type: Spontaneous
  Country: US (occurrence: None)
  Receive Date: 20230308
  Receipt Date: 20230308
  Transmission Date: 20230417
  Serious: Yes (Hospitalization)
  Sender: FDA-Public Use
  Company Number: None

PATIENT
  Sex: Male

DRUGS (13)
  1. ABIRATERONE ACETATE [Suspect]
     Active Substance: ABIRATERONE ACETATE
     Indication: Prostate cancer
     Dosage: 250 MG ORAL?TAKE 4 TABLETS BY MOUTH EVERY DAY
     Route: 048
     Dates: start: 20181229
  2. ABIRATERONE ACETATE [Suspect]
     Active Substance: ABIRATERONE ACETATE
     Dosage: FREQUENCY : DAILY;?
     Route: 048
  3. ALBUTEROL AER HFA [Concomitant]
  4. AZELASTINE SPR [Concomitant]
  5. BYSTOLIC [Concomitant]
  6. CALCIUM\VITAMIN D [Concomitant]
     Active Substance: CALCIUM\VITAMIN D
  7. LUPRON DEPOT [Concomitant]
  8. MULTI VITAMI [Concomitant]
  9. NASONEX SPR [Concomitant]
  10. OXYCODONE [Concomitant]
     Active Substance: OXYCODONE
  11. PREDNISONE POW [Concomitant]
  12. PROLIA [Concomitant]
     Active Substance: DENOSUMAB
  13. SYMBICORT [Concomitant]
     Active Substance: BUDESONIDE\FORMOTEROL FUMARATE DIHYDRATE

REACTIONS (3)
  - Surgery [None]
  - Pneumonia [None]
  - Therapy interrupted [None]
